FAERS Safety Report 20862881 (Version 1)
Quarter: 2022Q2

REPORT INFORMATION
  Report Type: Report from Study
  Country: JP (occurrence: JP)
  Receive Date: 20220523
  Receipt Date: 20220523
  Transmission Date: 20220720
  Serious: Yes (Death, Hospitalization, Other)
  Sender: FDA-Public Use
  Company Number: JP-PFIZER INC-2020022043

PATIENT
  Age: 87 Year
  Sex: Male
  Weight: 57.5 kg

DRUGS (9)
  1. LORBRENA [Suspect]
     Active Substance: LORLATINIB
     Indication: Non-small cell lung cancer
     Dosage: 100 MG, 1X/DAY
     Route: 048
     Dates: start: 20200109, end: 20200114
  2. LORBRENA [Suspect]
     Active Substance: LORLATINIB
     Dosage: 75 MG, 1X/DAY
     Route: 048
     Dates: start: 20200120, end: 20200124
  3. CARBOCYSTEINE [Concomitant]
     Active Substance: CARBOCYSTEINE
     Indication: Productive cough
     Dosage: UNK
     Route: 048
     Dates: start: 20200108, end: 20200114
  4. EPRAZINONE [Concomitant]
     Active Substance: EPRAZINONE
     Indication: Productive cough
     Dosage: UNK
     Route: 048
     Dates: start: 20200107, end: 20200114
  5. VALSARTAN [Concomitant]
     Active Substance: VALSARTAN
     Indication: Hypertension
     Dosage: UNK
     Route: 048
     Dates: end: 20200203
  6. ASPIRIN [Concomitant]
     Active Substance: ASPIRIN
     Indication: Hypertension
     Dosage: UNK
     Route: 048
     Dates: end: 20200203
  7. ASPIRIN [Concomitant]
     Active Substance: ASPIRIN
     Indication: Lacunar infarction
  8. HALOPERIDOL [Concomitant]
     Active Substance: HALOPERIDOL
     Dosage: UNK
  9. RISPERDAL [Concomitant]
     Active Substance: RISPERIDONE
     Route: 048

REACTIONS (7)
  - Neoplasm progression [Fatal]
  - Delirium [Recovered/Resolved]
  - Nervous system disorder [Recovering/Resolving]
  - Left ventricular dysfunction [Not Recovered/Not Resolved]
  - Cognitive disorder [Recovering/Resolving]
  - Speech disorder [Recovering/Resolving]
  - Abnormal behaviour [Recovering/Resolving]

NARRATIVE: CASE EVENT DATE: 20200110
